FAERS Safety Report 9669353 (Version 1)
Quarter: 2013Q4

REPORT INFORMATION
  Report Type: Spontaneous
  Country: US (occurrence: US)
  Receive Date: 20131105
  Receipt Date: 20131105
  Transmission Date: 20140711
  Serious: No
  Sender: FDA-Public Use
  Company Number: US-ABBVIE-12P-163-1013410-00

PATIENT
  Sex: 0

DRUGS (2)
  1. TRICOR [Suspect]
     Indication: PRODUCT USED FOR UNKNOWN INDICATION
  2. ONDANSETRON [Suspect]

REACTIONS (1)
  - Drug dispensing error [Not Recovered/Not Resolved]
